FAERS Safety Report 4326263-9 (Version None)
Quarter: 2004Q1

REPORT INFORMATION
  Report Type: 
  Country: None (occurrence: None)
  Receive Date: 20040329
  Receipt Date: 20020516
  Transmission Date: 20041129
  Serious: Yes (Hospitalization, Other)
  Sender: FDA-Public Use
  Company Number: US-MERCK-0205USA02130

PATIENT
  Age: 76 Year
  Sex: Male
  Weight: 75 kg

DRUGS (3)
  1. LIPITOR [Concomitant]
     Route: 065
     Dates: start: 19970108, end: 20030706
  2. ACCUPRIL [Concomitant]
     Route: 065
     Dates: start: 19970106, end: 20030706
  3. VIOXX [Suspect]
     Indication: ARTHRITIS
     Route: 048
     Dates: end: 20010101

REACTIONS (13)
  - AORTIC VALVE DISEASE [None]
  - ARTHRALGIA [None]
  - CAROTID ARTERY STENOSIS [None]
  - EMBOLISM [None]
  - EYE DISORDER [None]
  - HAEMATOMA [None]
  - HYPERTENSION [None]
  - INJURY [None]
  - MYOCARDIAL ISCHAEMIA [None]
  - ROAD TRAFFIC ACCIDENT [None]
  - TRANSIENT ISCHAEMIC ATTACK [None]
  - ULCER [None]
  - VASCULAR PSEUDOANEURYSM [None]
